FAERS Safety Report 8560576-X (Version None)
Quarter: 2012Q3

REPORT INFORMATION
  Report Type: 
  Country: None (occurrence: None)
  Receive Date: 20120723
  Receipt Date: 20120706
  Transmission Date: 20120928
  Serious: Yes (Other)
  Sender: FDA-Public Use
  Company Number: FK201201905

PATIENT
  Age: 68 Year
  Sex: Male

DRUGS (9)
  1. ONDANSETRON [Suspect]
     Indication: NAUSEA
     Dosage: 4 MG, ORAL
     Route: 048
     Dates: start: 20120618, end: 20120618
  2. MORPHINE SULFATE [Concomitant]
  3. ORAMORPH SR [Concomitant]
  4. DEXAMETHASONE SODIUM PHOSPHATE [Concomitant]
  5. OMEPRAZOLE [Concomitant]
  6. CYCLIZINE (CYCLIZINE) [Concomitant]
  7. MOVICOL (POLYETHYL. GLYC. W/POTAS. CHLOR./SOD. BICARB.) [Concomitant]
  8. DICLOFENAC SODIUM [Concomitant]
  9. SENNA-MINT WAF [Concomitant]

REACTIONS (4)
  - TREMOR [None]
  - MUSCLE SPASMS [None]
  - RESTLESSNESS [None]
  - AGITATION [None]
